FAERS Safety Report 6199634-6 (Version None)
Quarter: 2009Q2

REPORT INFORMATION
  Report Type: 
  Country: None (occurrence: None)
  Receive Date: 20090522
  Receipt Date: 20090320
  Transmission Date: 20091009
  Serious: No
  Sender: FDA-Public Use
  Company Number: A0774590A

PATIENT
  Age: 77 Year
  Sex: Female

DRUGS (8)
  1. BACTROBAN [Suspect]
     Dosage: 1APP TWICE PER DAY
     Route: 061
     Dates: start: 20080301
  2. LIPITOR [Concomitant]
  3. EVISTA [Concomitant]
  4. LEVOXYL [Concomitant]
  5. LOTREL [Concomitant]
  6. ASPIRIN [Concomitant]
  7. IMDUR [Concomitant]
  8. ACTOS [Concomitant]

REACTIONS (2)
  - NO ADVERSE EVENT [None]
  - THERAPEUTIC RESPONSE UNEXPECTED [None]
